FAERS Safety Report 5960027-5 (Version None)
Quarter: 2008Q4

REPORT INFORMATION
  Report Type: 
  Country: None (occurrence: None)
  Receive Date: 20081120
  Receipt Date: 20081105
  Transmission Date: 20090506
  Serious: Yes (Life-Threatening)
  Sender: FDA-Public Use
  Company Number: JP-MERCK-0808USA04904

PATIENT
  Age: 59 Year
  Sex: Male

DRUGS (4)
  1. PEPCID RPD [Suspect]
     Indication: GASTRITIS
     Route: 048
     Dates: start: 20080812, end: 20080812
  2. RANDA [Suspect]
     Route: 042
     Dates: start: 20080812, end: 20080812
  3. TAXOTERE [Concomitant]
     Route: 042
     Dates: start: 20080729, end: 20080812
  4. LOXONIN [Concomitant]
     Indication: PAIN MANAGEMENT
     Route: 065
     Dates: start: 20080808, end: 20080812

REACTIONS (1)
  - ACUTE RESPIRATORY FAILURE [None]
